FAERS Safety Report 11631852 (Version 1)
Quarter: 2015Q4

REPORT INFORMATION
  Report Type: Spontaneous
  Country: GB (occurrence: None)
  Receive Date: 20151013
  Receipt Date: 20151013
  Transmission Date: 20160304
  Serious: Yes (Other)
  Sender: FDA-Public Use
  Company Number: None

PATIENT
  Age: 4 Year
  Sex: Female
  Weight: 13.61 kg

DRUGS (1)
  1. CYCLOPENTOLATE [Suspect]
     Active Substance: CYCLOPENTOLATE

REACTIONS (4)
  - Syncope [None]
  - Unresponsive to stimuli [None]
  - Hypotonia [None]
  - Heart rate decreased [None]

NARRATIVE: CASE EVENT DATE: 20151009
